FAERS Safety Report 4464715-1 (Version None)
Quarter: 2004Q4

REPORT INFORMATION
  Report Type: 
  Country: None (occurrence: None)
  Receive Date: 20041004
  Receipt Date: 20040923
  Transmission Date: 20050328
  Serious: Yes (Hospitalization)
  Sender: FDA-Public Use
  Company Number: US-JNJFOC-20040908169

PATIENT
  Sex: Female

DRUGS (1)
  1. DURAGESIC [Suspect]
     Indication: CANCER PAIN
     Dosage: OLD PATCH LEFT ON 2 HOURS AFTER NEW PATCH APPLIED; DOSING OVERLAPPED 2 HOURS UNTIL OLD PATCH REMOVED
     Route: 062
     Dates: start: 20040917

REACTIONS (2)
  - CHILLS [None]
  - MEDICATION ERROR [None]
